FAERS Safety Report 10814654 (Version 1)
Quarter: 2015Q1

REPORT INFORMATION
  Report Type: Report from Study
  Country: US (occurrence: US)
  Receive Date: 20150218
  Receipt Date: 20150218
  Transmission Date: 20150721
  Serious: No
  Sender: FDA-Public Use
  Company Number: US-ABBVIE-14K-163-1278900-00

PATIENT
  Sex: Female

DRUGS (1)
  1. HUMIRA [Suspect]
     Active Substance: ADALIMUMAB
     Indication: CROHN^S DISEASE
     Route: 065
     Dates: start: 20140130

REACTIONS (10)
  - Crying [Unknown]
  - Nerve compression [Not Recovered/Not Resolved]
  - Platelet count decreased [Recovering/Resolving]
  - Carpal tunnel syndrome [Unknown]
  - Musculoskeletal pain [Not Recovered/Not Resolved]
  - Injection site pain [Unknown]
  - Liver disorder [Unknown]
  - Neuralgia [Not Recovered/Not Resolved]
  - Diabetes mellitus [Not Recovered/Not Resolved]
  - Spinal disorder [Not Recovered/Not Resolved]

NARRATIVE: CASE EVENT DATE: 2014
